FAERS Safety Report 6712816-7 (Version None)
Quarter: 2010Q2

REPORT INFORMATION
  Report Type: 
  Country: None (occurrence: None)
  Receive Date: 20100506
  Receipt Date: 20091224
  Transmission Date: 20101027
  Serious: No
  Sender: FDA-Public Use
  Company Number: A0836726A

PATIENT
  Age: 45 Year
  Sex: Female

DRUGS (3)
  1. AUGMENTIN '125' [Suspect]
     Indication: PNEUMONIA
     Route: 048
     Dates: start: 20091210, end: 20091221
  2. COUGH MEDICINE WITH CODEINE [Concomitant]
  3. STEROID [Concomitant]

REACTIONS (4)
  - DIARRHOEA [None]
  - PARAESTHESIA [None]
  - RASH [None]
  - RASH GENERALISED [None]
